FAERS Safety Report 22367655 (Version 9)
Quarter: 2025Q2

REPORT INFORMATION
  Report Type: Spontaneous
  Country: US (occurrence: US)
  Receive Date: 20230525
  Receipt Date: 20250520
  Transmission Date: 20250716
  Serious: No
  Sender: PFIZER
  Company Number: US-PFIZER INC-PV202300091634

PATIENT
  Age: 72 Year
  Sex: Female

DRUGS (1)
  1. ESTRING [Suspect]
     Active Substance: ESTRADIOL
     Route: 067

REACTIONS (2)
  - Urinary incontinence [Unknown]
  - Dysphonia [Unknown]

NARRATIVE: CASE EVENT DATE: 20241129
